FAERS Safety Report 8861850 (Version 1)
Quarter: 2012Q4

REPORT INFORMATION
  Report Type: Spontaneous
  Country: GB (occurrence: None)
  Receive Date: 20121024
  Receipt Date: 20121024
  Transmission Date: 20130627
  Serious: Yes (Other)
  Sender: FDA-Public Use
  Company Number: ABR_00667_2012

PATIENT
  Age: 67 Year
  Sex: Female

DRUGS (3)
  1. ERYTHROMYCIN [Suspect]
     Indication: ROSACEA
     Dates: end: 20090926
  2. RAMIPRIL [Concomitant]
  3. SLOZEM [Concomitant]

REACTIONS (1)
  - Vaginal haemorrhage [None]
